FAERS Safety Report 7420257-2 (Version None)
Quarter: 2011Q2

REPORT INFORMATION
  Report Type: 
  Country: None (occurrence: None)
  Receive Date: 20110407
  Receipt Date: 20110401
  Transmission Date: 20111010
  Serious: Yes (Other)
  Sender: FDA-Public Use
  Company Number: 2011SP009092

PATIENT
  Sex: Female

DRUGS (1)
  1. IMPLANON [Suspect]
     Indication: CONTRACEPTION
     Dates: start: 20110202, end: 20110301

REACTIONS (5)
  - HYPERTHERMIA [None]
  - DEVICE EXPULSION [None]
  - PURULENCE [None]
  - IMPLANT SITE INFLAMMATION [None]
  - IMPLANT SITE DISCHARGE [None]
